FAERS Safety Report 6213324-2 (Version None)
Quarter: 2009Q2

REPORT INFORMATION
  Report Type: 
  Country: None (occurrence: None)
  Receive Date: 20090603
  Receipt Date: 20090601
  Transmission Date: 20091009
  Serious: Yes (Other)
  Sender: FDA-Public Use
  Company Number: AU-BRISTOL-MYERS SQUIBB COMPANY-14644298

PATIENT
  Age: 75 Year
  Sex: Male

DRUGS (8)
  1. IRBESARTAN [Suspect]
  2. METFORMIN HCL [Suspect]
  3. WARFARIN SODIUM [Suspect]
  4. ALDACTONE [Suspect]
  5. ALLOPURINOL [Suspect]
  6. GLICLAZIDE [Suspect]
  7. MOBIC [Suspect]
  8. PERINDOPRIL ERBUMINE [Suspect]

REACTIONS (4)
  - ACIDOSIS [None]
  - GASTRODUODENAL HAEMORRHAGE [None]
  - HYPERKALAEMIA [None]
  - RENAL FAILURE ACUTE [None]
